FAERS Safety Report 7934428-X (Version None)
Quarter: 2011Q4

REPORT INFORMATION
  Report Type: 
  Country: None (occurrence: None)
  Receive Date: 20111122
  Receipt Date: 20111117
  Transmission Date: 20120403
  Serious: Yes (Disabling)
  Sender: FDA-Public Use
  Company Number: US-GLAXOSMITHKLINE-A0953757A

PATIENT
  Age: 53 Year
  Sex: Female

DRUGS (2)
  1. UNKNOWN [Concomitant]
  2. VALTREX [Suspect]
     Indication: GENITAL HERPES
     Dosage: 500MG PER DAY
     Route: 048

REACTIONS (1)
  - GENITAL HERPES [None]
